FAERS Safety Report 23313491 (Version 3)
Quarter: 2023Q4

REPORT INFORMATION
  Report Type: Report from Study
  Country: MA (occurrence: MA)
  Receive Date: 20231219
  Receipt Date: 20231227
  Transmission Date: 20240109
  Serious: Yes (Death, Hospitalization)
  Sender: FDA-Public Use
  Company Number: MA-002147023-NVSC2023MA268573

PATIENT
  Sex: Female

DRUGS (2)
  1. AFINITOR [Suspect]
     Active Substance: EVEROLIMUS
     Indication: Breast cancer
     Dosage: 5 MG (4 TABLETS PER DAY; 2 IN THE MORNING AND 2 IN THE EVENING)
     Route: 048
  2. GOSERELIN [Concomitant]
     Active Substance: GOSERELIN
     Indication: Product used for unknown indication
     Dosage: 3.6 UNK, QMO (FOR A MILD LIQUID COLLECTION IN HER BELLY)
     Route: 065

REACTIONS (1)
  - Coma hepatic [Fatal]
